FAERS Safety Report 15219425 (Version 1)
Quarter: 2018Q3

REPORT INFORMATION
  Report Type: Spontaneous
  Country: US (occurrence: US)
  Receive Date: 20180731
  Receipt Date: 20180731
  Transmission Date: 20181010
  Serious: Yes (Hospitalization, Other)
  Sender: FDA-Public Use
  Company Number: US-LUPIN PHARMACEUTICALS INC.-2017-07210

PATIENT
  Age: 49 Year
  Sex: Female

DRUGS (2)
  1. DIPHENHYDRAMINE. [Concomitant]
     Active Substance: DIPHENHYDRAMINE
     Indication: CONJUNCTIVITIS
     Dosage: 12.5 MG, BID
     Route: 065
  2. CIPROFLOXACIN. [Suspect]
     Active Substance: CIPROFLOXACIN
     Indication: CONJUNCTIVITIS
     Dosage: UNK UNK, TID
     Route: 047

REACTIONS (1)
  - Erythema multiforme [Recovering/Resolving]
